FAERS Safety Report 14535134 (Version 1)
Quarter: 2018Q1

REPORT INFORMATION
  Report Type: Spontaneous
  Country: DE (occurrence: DE)
  Receive Date: 20180215
  Receipt Date: 20180215
  Transmission Date: 20180509
  Serious: Yes (Other)
  Sender: FDA-Public Use
  Company Number: DE-JNJFOC-20180220215

PATIENT
  Sex: Female

DRUGS (1)
  1. XARELTO [Suspect]
     Active Substance: RIVAROXABAN
     Indication: ATRIAL FIBRILLATION
     Route: 048
     Dates: start: 20180208

REACTIONS (5)
  - Headache [Unknown]
  - Dizziness [Unknown]
  - Abdominal pain upper [Unknown]
  - Diarrhoea [Unknown]
  - Arrhythmia [Unknown]

NARRATIVE: CASE EVENT DATE: 201802
